FAERS Safety Report 23065137 (Version 2)
Quarter: 2024Q1

REPORT INFORMATION
  Report Type: Report from Study
  Country: CA (occurrence: CA)
  Receive Date: 20231013
  Receipt Date: 20240301
  Transmission Date: 20240409
  Serious: Yes (Hospitalization)
  Sender: FDA-Public Use
  Company Number: CA-BAUSCH-BL-2023-015190

PATIENT
  Age: 60 Year
  Sex: Female

DRUGS (1)
  1. RIFAXIMIN [Suspect]
     Active Substance: RIFAXIMIN
     Indication: Hepatic encephalopathy
     Route: 065

REACTIONS (5)
  - Liver disorder [Unknown]
  - Tremor [Unknown]
  - Memory impairment [Unknown]
  - Inability to afford medication [Unknown]
  - Product prescribing error [Unknown]
